FAERS Safety Report 9364182 (Version 1)
Quarter: 2013Q2

REPORT INFORMATION
  Report Type: Spontaneous
  Country: JP (occurrence: JP)
  Receive Date: 20130624
  Receipt Date: 20130624
  Transmission Date: 20140414
  Serious: Yes (Other)
  Sender: FDA-Public Use
  Company Number: JP-PFIZER INC-2013183822

PATIENT
  Age: 78 Year
  Sex: Male

DRUGS (1)
  1. SUTENT [Suspect]
     Indication: RENAL CANCER
     Dosage: 50 MG/DAY
     Route: 048
     Dates: start: 20130604

REACTIONS (7)
  - Altered state of consciousness [Unknown]
  - Platelet count decreased [Unknown]
  - Asthenia [Unknown]
  - Hepatic function abnormal [Unknown]
  - Blood lactate dehydrogenase abnormal [Unknown]
  - Haptoglobin decreased [Unknown]
  - Haematuria [Unknown]
